FAERS Safety Report 8634813 (Version 2)
Quarter: 2012Q4

REPORT INFORMATION
  Report Type: 
  Country: US (occurrence: US)
  Receive Date: 20120626
  Receipt Date: 20121120
  Transmission Date: 20130627
  Serious: Yes (Hospitalization)
  Sender: FDA-Public Use
  Company Number: US-BAYER-2012-061846

PATIENT
  Age: 18 Year
  Sex: Female
  Weight: 74.83 kg

DRUGS (6)
  1. YASMIN [Suspect]
     Indication: ACNE
     Dosage: UNK
     Dates: start: 200410, end: 200509
  2. DARVOCET [Concomitant]
     Indication: PAIN
  3. NORCO [Concomitant]
     Indication: PAIN
     Dosage: UNK UNK, PRN
     Route: 048
     Dates: start: 200503
  4. UNCODEABLE ^UNCLASSIFIABLE^ [Concomitant]
     Indication: HEADACHE
     Dosage: UNK UNK, PRN
     Route: 048
     Dates: start: 20050306
  5. TYLENOL [Concomitant]
     Dosage: UNK
     Dates: start: 200201
  6. IBUPROFEN [Concomitant]
     Dosage: UNK
     Dates: start: 200201

REACTIONS (7)
  - Cholelithiasis [None]
  - Cholecystitis chronic [None]
  - Injury [None]
  - Pain [None]
  - Fear [None]
  - Anxiety [None]
  - Pain [None]
